FAERS Safety Report 22650643 (Version 1)
Quarter: 2023Q2

REPORT INFORMATION
  Report Type: Spontaneous
  Country: CN (occurrence: CN)
  Receive Date: 20230628
  Receipt Date: 20230628
  Transmission Date: 20230721
  Serious: Yes (Other)
  Sender: FDA-Public Use
  Company Number: None

PATIENT
  Age: 55 Year
  Sex: Female
  Weight: 53 kg

DRUGS (11)
  1. CYCLOPHOSPHAMIDE [Suspect]
     Active Substance: CYCLOPHOSPHAMIDE
     Indication: Breast cancer female
     Dosage: 0.9 G, QD, DAY 1, DILUTED WITH 50 ML OF 0.9% SODIUM CHLORIDE
     Route: 041
     Dates: start: 20230414, end: 20230414
  2. CYCLOPHOSPHAMIDE [Suspect]
     Active Substance: CYCLOPHOSPHAMIDE
     Indication: Chemotherapy
     Dosage: 0.9 G, QD
     Route: 041
     Dates: start: 20230527, end: 20230527
  3. SODIUM CHLORIDE [Suspect]
     Active Substance: SODIUM CHLORIDE
     Indication: Medication dilution
     Dosage: 0.9% 50 ML, QD, DAY 1, USED TO DILUTE 0.9 G OF CYCLOPHOSPHAMIDE
     Route: 041
     Dates: start: 20230414, end: 20230414
  4. SODIUM CHLORIDE [Suspect]
     Active Substance: SODIUM CHLORIDE
     Dosage: 0.9% 250 ML, QD, DAY 1, USED TO DILUTE 420 MG OF TRASTUZUMAB
     Route: 041
     Dates: start: 20230414, end: 20230414
  5. SODIUM CHLORIDE [Suspect]
     Active Substance: SODIUM CHLORIDE
     Dosage: 0.9% 250 ML, QD, DAY 2, USE TO DILUTE 110 MG OF DOCETAXEL INJECTION
     Route: 041
     Dates: start: 20230415, end: 20230415
  6. DOCETAXEL [Suspect]
     Active Substance: DOCETAXEL
     Indication: Breast cancer female
     Dosage: 110 MG, QD, DAY 2, DILUTED WITH 250 ML OF 0.9% SODIUM CHLORIDE INJECTION
     Route: 041
     Dates: start: 20230415, end: 20230415
  7. DOCETAXEL [Suspect]
     Active Substance: DOCETAXEL
     Indication: Chemotherapy
     Dosage: 110 MG, QD
     Route: 041
     Dates: start: 20230527, end: 20230527
  8. HERCEPTIN [Suspect]
     Active Substance: TRASTUZUMAB
     Indication: Breast cancer female
     Dosage: 420 MG, QD, DAY 1, DILUTED WITH 250 ML 0.9% SODIUM CHLORIDE INJECTION
     Route: 041
     Dates: start: 20230414, end: 20230414
  9. HERCEPTIN [Suspect]
     Active Substance: TRASTUZUMAB
     Indication: Chemotherapy
     Dosage: 420 MG, QD
     Route: 041
     Dates: start: 20230526, end: 20230526
  10. HERCEPTIN [Suspect]
     Active Substance: TRASTUZUMAB
     Dosage: 420 MG, QD
     Route: 041
     Dates: start: 20230526, end: 20230526
  11. HERCEPTIN [Suspect]
     Active Substance: TRASTUZUMAB
     Dosage: 420 MG, QD
     Route: 041
     Dates: start: 20230526, end: 20230526

REACTIONS (2)
  - Myelosuppression [Recovered/Resolved]
  - Mouth ulceration [Recovering/Resolving]

NARRATIVE: CASE EVENT DATE: 20230601
